FAERS Safety Report 19489532 (Version 1)
Quarter: 2021Q3

REPORT INFORMATION
  Report Type: Spontaneous
  Country: ES (occurrence: ES)
  Receive Date: 20210703
  Receipt Date: 20210703
  Transmission Date: 20211014
  Serious: Yes (Life-Threatening)
  Sender: FDA-Public Use
  Company Number: ES-TEVA-2021-ES-1926917

PATIENT
  Age: 84 Year
  Sex: Female

DRUGS (11)
  1. METFORMINA TEVA 850 MG COMPRIMIDOS RECUBIERTOS CON PELICULA EFG [Suspect]
     Active Substance: METFORMIN HYDROCHLORIDE
     Indication: DIABETES MELLITUS
     Dosage: 850 MG
     Dates: start: 20150901
  2. INSULATARD FLEXPEN 100 UI/ML SUSPENSION INYECTABLE EN PLUMA PRECARGADA [Concomitant]
  3. TRAJENTA 5 MG COMPRIMIDOS RECUBIERTOS CON PELICULA [Concomitant]
  4. BELMAZOL 20 MG CAPSULAS DURAS GASTRORRESISTENTES [Concomitant]
  5. EXFORGE HCT 10 MG/160 MG/12,5 MG COMPRIMIDOS RECUBIERTOS CON PELICULA [Concomitant]
  6. GABAPENTINA 300 MG CAPSULA [Concomitant]
     Active Substance: GABAPENTIN
  7. FERO?GRADUMET 105 MG COMPRIMIDOS DE LIBERACION PROLONGADA. [Concomitant]
  8. METAMIZOL TEVA 575 MG CAPSULAS DURAS EFG [Concomitant]
  9. TROMALYT 150, CAPSULAS DURAS DE LIBERACION PROLONGADA [Concomitant]
  10. TARDYFERON 80 MG COMPRIMIDOS RECUBIERTOS [Concomitant]
  11. LIVAZO 2 MG COMPRIMIDOS RECUBIERTOS CON PELICULA [Concomitant]

REACTIONS (3)
  - Contraindicated product administered [Recovered/Resolved with Sequelae]
  - Medication error [Recovered/Resolved with Sequelae]
  - Lactic acidosis [Recovered/Resolved with Sequelae]

NARRATIVE: CASE EVENT DATE: 20210606
